FAERS Safety Report 6507610-6 (Version None)
Quarter: 2009Q4

REPORT INFORMATION
  Report Type: 
  Country: None (occurrence: None)
  Receive Date: 20091221
  Receipt Date: 20090608
  Transmission Date: 20100525
  Serious: No
  Sender: FDA-Public Use
  Company Number: US-BRISTOL-MYERS SQUIBB COMPANY-14653539

PATIENT
  Age: 79 Year
  Sex: Female
  Weight: 59 kg

DRUGS (3)
  1. PRAVACHOL [Suspect]
     Indication: BLOOD CHOLESTEROL INCREASED
     Dosage: INITIATED APPROXIMATELY FIVE WEEKS AGO
  2. AROMASIN [Concomitant]
  3. SYNTHROID [Concomitant]

REACTIONS (2)
  - LOCAL SWELLING [None]
  - SWELLING FACE [None]
